FAERS Safety Report 8358643-9 (Version None)
Quarter: 2012Q2

REPORT INFORMATION
  Report Type: 
  Country: None (occurrence: None)
  Receive Date: 20120514
  Receipt Date: 20120420
  Transmission Date: 20120825
  Serious: Yes (Hospitalization, Other)
  Sender: FDA-Public Use
  Company Number: JP-ROCHE-1040504

PATIENT
  Sex: Male

DRUGS (4)
  1. LUCENTIS [Suspect]
     Dates: start: 20100118
  2. LUCENTIS [Suspect]
     Indication: AGE-RELATED MACULAR DEGENERATION
     Route: 050
     Dates: start: 20091215
  3. GATIFLOXACIN [Concomitant]
     Dates: start: 20091201, end: 20100201
  4. LUCENTIS [Suspect]
     Dates: start: 20100219, end: 20100219

REACTIONS (1)
  - HAEMATOMA [None]
